FAERS Safety Report 6865604-5 (Version None)
Quarter: 2010Q3

REPORT INFORMATION
  Report Type: 
  Country: None (occurrence: None)
  Receive Date: 20100721
  Receipt Date: 20080423
  Transmission Date: 20110219
  Serious: No
  Sender: FDA-Public Use
  Company Number: US-PFIZER INC-2008037778

PATIENT
  Sex: Female
  Weight: 54.09 kg

DRUGS (4)
  1. CHANTIX [Suspect]
     Indication: SMOKING CESSATION THERAPY
     Dates: start: 20080223, end: 20080301
  2. PREVACID [Concomitant]
  3. PROTONIX [Concomitant]
  4. KLONOPIN [Concomitant]
     Indication: ANXIETY

REACTIONS (4)
  - ABNORMAL DREAMS [None]
  - GASTROOESOPHAGEAL REFLUX DISEASE [None]
  - INSOMNIA [None]
  - MIDDLE INSOMNIA [None]
